FAERS Safety Report 22041435 (Version 1)
Quarter: 2023Q1

REPORT INFORMATION
  Report Type: Spontaneous
  Country: US (occurrence: US)
  Receive Date: 20230227
  Receipt Date: 20230227
  Transmission Date: 20230418
  Serious: Yes (Other)
  Sender: FDA-Public Use
  Company Number: US-FreseniusKabi-FK202302301

PATIENT
  Age: 64 Year
  Sex: Male

DRUGS (4)
  1. HEPARIN SODIUM [Suspect]
     Active Substance: HEPARIN SODIUM
     Indication: Anticoagulant therapy
     Dosage: @ 1347
     Route: 042
     Dates: start: 20230217, end: 20230217
  2. HEPARIN SODIUM [Suspect]
     Active Substance: HEPARIN SODIUM
     Dosage: @1427?1435-2000 UNITS, ?1441-2000 UNITS.
     Route: 042
     Dates: start: 20230217, end: 20230217
  3. HEPARIN SODIUM [Suspect]
     Active Substance: HEPARIN SODIUM
     Dosage: @1435?1441-2000 UNITS.
     Route: 042
     Dates: start: 20230217, end: 20230217
  4. HEPARIN SODIUM [Suspect]
     Active Substance: HEPARIN SODIUM
     Dosage: @1441
     Route: 042
     Dates: start: 20230217, end: 20230217

REACTIONS (1)
  - Therapeutic product effect decreased [Unknown]

NARRATIVE: CASE EVENT DATE: 20230217
